FAERS Safety Report 25630065 (Version 3)
Quarter: 2025Q4

REPORT INFORMATION
  Report Type: Report from Study
  Country: US (occurrence: US)
  Receive Date: 20250801
  Receipt Date: 20251010
  Transmission Date: 20260117
  Serious: Yes (Hospitalization)
  Sender: ABBVIE
  Company Number: US-ABBVIE-6395319

PATIENT
  Age: 23 Year
  Sex: Female

DRUGS (3)
  1. RINVOQ [Suspect]
     Active Substance: UPADACITINIB
     Indication: Crohn^s disease
     Dosage: FORM STRENGTH 45 MG
     Route: 048
     Dates: start: 20250607, end: 20250707
  2. RINVOQ [Suspect]
     Active Substance: UPADACITINIB
     Indication: Crohn^s disease
     Dosage: FIRST ADMINISTARTION DATE 2025
     Route: 048
  3. SULFASALAZINE EC [Concomitant]
     Active Substance: SULFASALAZINE
     Indication: Crohn^s disease
     Dates: start: 20230915

REACTIONS (7)
  - Atrial fibrillation [Recovering/Resolving]
  - Infectious mononucleosis [Recovered/Resolved]
  - Hypotension [Unknown]
  - Tachycardia [Recovering/Resolving]
  - Human ehrlichiosis [Recovering/Resolving]
  - Crohn^s disease [Recovering/Resolving]
  - Influenza like illness [Recovering/Resolving]

NARRATIVE: CASE EVENT DATE: 20250101
